FAERS Safety Report 19872251 (Version 1)
Quarter: 2021Q3

REPORT INFORMATION
  Report Type: Spontaneous
  Country: US (occurrence: US)
  Receive Date: 20210923
  Receipt Date: 20210923
  Transmission Date: 20211014
  Serious: Yes (Life-Threatening, Hospitalization, Disabling, Other)
  Sender: FDA-Public Use
  Company Number: None

PATIENT
  Age: 31 Year
  Sex: Female
  Weight: 61.65 kg

DRUGS (3)
  1. TRIAMCINOLONE ACETONIDE OINTMENT USP 0.1% [Suspect]
     Active Substance: TRIAMCINOLONE ACETONIDE
     Indication: DERMATITIS ATOPIC
  2. COLLAGEN AND SUPPLEMENTS [Concomitant]
  3. VITAMINS [Concomitant]
     Active Substance: VITAMINS

REACTIONS (18)
  - Skin odour abnormal [None]
  - Skin wound [None]
  - Dermatitis allergic [None]
  - Gait inability [None]
  - Infection [None]
  - Feeling abnormal [None]
  - Skin laceration [None]
  - Adrenal disorder [None]
  - Fatigue [None]
  - Immobile [None]
  - Insomnia [None]
  - Skin weeping [None]
  - Skin exfoliation [None]
  - Skin wrinkling [None]
  - Skin haemorrhage [None]
  - Steroid withdrawal syndrome [None]
  - Skin fissures [None]
  - Underweight [None]

NARRATIVE: CASE EVENT DATE: 20190402
